FAERS Safety Report 10108973 (Version 2)
Quarter: 2014Q2

REPORT INFORMATION
  Report Type: Spontaneous
  Country: BR (occurrence: BR)
  Receive Date: 20140425
  Receipt Date: 20140512
  Transmission Date: 20141212
  Serious: Yes (Death)
  Sender: FDA-Public Use
  Company Number: BR-SA-2014SA053071

PATIENT
  Age: 52 Year
  Sex: Male

DRUGS (3)
  1. LANTUS SOLOSTAR [Suspect]
     Indication: TYPE 2 DIABETES MELLITUS
     Route: 058
     Dates: start: 2012, end: 20131102
  2. SOLOSTAR [Concomitant]
     Dates: start: 2012, end: 20131102
  3. GLIFAGE [Concomitant]
     Dosage: STRENGTH: 50/850MG
     Route: 048

REACTIONS (3)
  - Pulmonary embolism [Fatal]
  - Arterial occlusive disease [Fatal]
  - Renal disorder [Fatal]
